FAERS Safety Report 4467936-7 (Version None)
Quarter: 2004Q4

REPORT INFORMATION
  Report Type: 
  Country: None (occurrence: None)
  Receive Date: 20041004
  Receipt Date: 20041004
  Transmission Date: 20050328
  Serious: Yes (Other)
  Sender: FDA-Public Use
  Company Number: None

PATIENT
  Age: 85 Year
  Sex: Male
  Weight: 55.1 kg

DRUGS (2)
  1. ARICEPT [Suspect]
  2. FOSINOPRIL [Concomitant]

REACTIONS (1)
  - DIARRHOEA [None]
